FAERS Safety Report 5844458-X (Version None)
Quarter: 2008Q3

REPORT INFORMATION
  Report Type: 
  Country: None (occurrence: None)
  Receive Date: 20080812
  Receipt Date: 20080729
  Transmission Date: 20090109
  Serious: Yes (Hospitalization, Other)
  Sender: FDA-Public Use
  Company Number: 2006BI013761

PATIENT
  Age: 32 Year
  Sex: Female

DRUGS (6)
  1. AVONEX [Suspect]
     Dosage: 30 UG; QW; IM, 30 UG; QW; IM, 30 UG; QW; IM
     Route: 030
     Dates: start: 20000201, end: 20030701
  2. AVONEX [Suspect]
     Dosage: 30 UG; QW; IM, 30 UG; QW; IM, 30 UG; QW; IM
     Route: 030
     Dates: start: 20030801, end: 20060701
  3. AVONEX [Suspect]
     Dosage: 30 UG; QW; IM, 30 UG; QW; IM, 30 UG; QW; IM
     Route: 030
     Dates: start: 20060926
  4. PRE NATAL MULTIVITAMINS [Concomitant]
  5. EFFEXOR [Concomitant]
  6. PROGESTERONE [Concomitant]

REACTIONS (4)
  - ABORTION SPONTANEOUS [None]
  - DRUG EXPOSURE DURING PREGNANCY [None]
  - MATERNAL DRUGS AFFECTING FOETUS [None]
  - PREGNANCY [None]
